FAERS Safety Report 8444487-6 (Version None)
Quarter: 2012Q2

REPORT INFORMATION
  Report Type: 
  Country: None (occurrence: None)
  Receive Date: 20120618
  Receipt Date: 20120612
  Transmission Date: 20120825
  Serious: Yes (Death, Life-Threatening, Other)
  Sender: FDA-Public Use
  Company Number: NL-ASTRAZENECA-2012SE37129

PATIENT
  Age: 24413 Day
  Sex: Female

DRUGS (17)
  1. BRILINTA [Suspect]
     Indication: ACUTE MYOCARDIAL INFARCTION
     Route: 048
     Dates: start: 20120520, end: 20120604
  2. METOPROLOL TARTRAAT [Concomitant]
     Dosage: 50 MG AT 18:00, 06:00
     Route: 050
  3. ATORVASTATIN CALCIUM [Concomitant]
     Dosage: 40 MG (1X PER 24 HOURS) AT 06:00
     Route: 050
  4. ATENOLOL [Concomitant]
  5. CAPOTEN [Concomitant]
  6. BENEFIBER [Concomitant]
     Dosage: 4 G (1 MEASURED SCOOP=4 G, DISSOLVE THIS IN 100 ML DISTILLED WATER) AT 14:00, 22:00, 06:00
     Route: 050
  7. ACTRAPID [Concomitant]
     Dosage: 3.4 IU/HOUR
  8. CAPTOPRIL [Concomitant]
     Dosage: 12.5 MG AT 14:00, 22:00, 06:00
     Route: 050
  9. METOPROLOL TARTRAAT [Concomitant]
     Route: 050
  10. CARBASALAATCALCIUM [Concomitant]
     Dosage: 100 MG (1X PER 24 HOURS) AT 06:00
     Route: 050
  11. HEPARIN [Concomitant]
     Dosage: 400 IU/HOUR
  12. AMLODIPINE [Concomitant]
  13. METFORMIN HCL [Concomitant]
  14. ASCAL [Concomitant]
  15. SPIRONOLACTONE [Concomitant]
     Dosage: 25 MG AT 20:00, 08:00
     Route: 050
  16. HALOPERIDOL [Concomitant]
     Dosage: 1 MG AT 14:00, 22:00, 06:00
     Route: 048
  17. SALBUTAMOL ATOMIZED [Concomitant]
     Dosage: 5 MG AT 11:00, 17:00, 05:00

REACTIONS (2)
  - CARDIAC ARREST [None]
  - CARDIAC FAILURE [None]
